FAERS Safety Report 19275341 (Version 2)
Quarter: 2021Q2

REPORT INFORMATION
  Report Type: Spontaneous
  Country: FR (occurrence: FR)
  Receive Date: 20210519
  Receipt Date: 20210627
  Transmission Date: 20210717
  Serious: Yes (Disabling, Other)
  Sender: FDA-Public Use
  Company Number: NVSC2021FR110202

PATIENT
  Age: 54 Year
  Sex: Female

DRUGS (4)
  1. RIFABUTIN. [Suspect]
     Active Substance: RIFABUTIN
     Indication: EVIDENCE BASED TREATMENT
  2. DOXYCYCLINE. [Suspect]
     Active Substance: DOXYCYCLINE
     Indication: MYCOBACTERIUM MARINUM INFECTION
     Dosage: UNK
     Route: 065
  3. RIFABUTIN. [Suspect]
     Active Substance: RIFABUTIN
     Indication: MYCOBACTERIUM MARINUM INFECTION
     Dosage: 150 MG
     Route: 065
  4. DOXYCYCLINE. [Suspect]
     Active Substance: DOXYCYCLINE
     Indication: EVIDENCE BASED TREATMENT

REACTIONS (5)
  - Gastrointestinal disorder [Unknown]
  - Neutropenia [Unknown]
  - Product use in unapproved indication [Unknown]
  - Hepatitis cholestatic [Unknown]
  - Renal impairment [Unknown]
